FAERS Safety Report 10260289 (Version 1)
Quarter: 2014Q2

REPORT INFORMATION
  Report Type: Spontaneous
  Country: US (occurrence: US)
  Receive Date: 20140625
  Receipt Date: 20140625
  Transmission Date: 20141212
  Serious: Yes (Other)
  Sender: FDA-Public Use
  Company Number: US-SA-2014SA056150

PATIENT
  Sex: Female
  Weight: 68.03 kg

DRUGS (5)
  1. AUBAGIO [Suspect]
     Indication: MULTIPLE SCLEROSIS
     Route: 065
     Dates: start: 201308, end: 201403
  2. ZANAFLEX [Concomitant]
     Indication: MUSCLE SPASMS
  3. TOPAMAX [Concomitant]
     Indication: MUSCLE SPASMS
  4. LAMICTAL [Concomitant]
     Indication: CONVULSION
  5. ULTRAM [Concomitant]
     Indication: MUSCLE SPASMS

REACTIONS (1)
  - Neutropenia [Unknown]
